FAERS Safety Report 14080190 (Version 1)
Quarter: 2017Q4

REPORT INFORMATION
  Report Type: Spontaneous
  Country: US (occurrence: US)
  Receive Date: 20171012
  Receipt Date: 20171012
  Transmission Date: 20180321
  Serious: No
  Sender: FDA-Public Use
  Company Number: US-MYLANLABS-2017M1031236

PATIENT
  Sex: Male
  Weight: 95 kg

DRUGS (1)
  1. EMSAM [Suspect]
     Active Substance: SELEGILINE
     Indication: DEPRESSION
     Dosage: 6 MG, QD
     Route: 062
     Dates: start: 201705

REACTIONS (2)
  - Joint swelling [Not Recovered/Not Resolved]
  - Peripheral swelling [Recovered/Resolved]

NARRATIVE: CASE EVENT DATE: 20170522
